FAERS Safety Report 11252546 (Version 1)
Quarter: 2015Q3

REPORT INFORMATION
  Report Type: Spontaneous
  Country: US (occurrence: US)
  Receive Date: 20150708
  Receipt Date: 20150708
  Transmission Date: 20151125
  Serious: No
  Sender: FDA-Public Use
  Company Number: US-GLAXOSMITHKLINE-US2015094185

PATIENT
  Age: 71 Year
  Sex: Male

DRUGS (3)
  1. FLOVENT [Suspect]
     Active Substance: FLUTICASONE PROPIONATE
     Indication: ASTHMA
     Dosage: 1 PUFF(S), BID
     Route: 055
     Dates: start: 2005
  2. ALBUTEROL. [Concomitant]
     Active Substance: ALBUTEROL
  3. GLUCOSAMINE [Concomitant]
     Active Substance: GLUCOSAMINE

REACTIONS (4)
  - Bone densitometry [Unknown]
  - Cataract [Unknown]
  - Vitamin D decreased [Unknown]
  - Osteopenia [Unknown]

NARRATIVE: CASE EVENT DATE: 201506
